FAERS Safety Report 5491895-1 (Version None)
Quarter: 2007Q4

REPORT INFORMATION
  Report Type: 
  Country: None (occurrence: None)
  Receive Date: 20071022
  Receipt Date: 20071011
  Transmission Date: 20080405
  Serious: Yes (Hospitalization)
  Sender: FDA-Public Use
  Company Number: US-JNJFOC-20071003268

PATIENT
  Sex: Male
  Weight: 58.97 kg

DRUGS (3)
  1. DURAGESIC-100 [Suspect]
     Route: 062
  2. DURAGESIC-100 [Suspect]
     Indication: CANCER PAIN
     Route: 062
  3. UNKNOWN PAIN MEDICATION [Concomitant]
     Indication: PAIN
     Route: 065

REACTIONS (1)
  - HYPOTENSION [None]
